FAERS Safety Report 5957564-6 (Version None)
Quarter: 2008Q4

REPORT INFORMATION
  Report Type: 
  Country: None (occurrence: None)
  Receive Date: 20081117
  Receipt Date: 20081117
  Transmission Date: 20090506
  Serious: No
  Sender: FDA-Public Use
  Company Number: None

PATIENT
  Sex: Female
  Weight: 72.5755 kg

DRUGS (2)
  1. RESTASIS [Suspect]
     Indication: DRY EYE
     Dosage: 1 DROP TWICE DAILY
     Dates: start: 20080601
  2. RESTASIS [Suspect]
     Indication: DRY EYE
     Dosage: 1 DROP TWICE DAILY
     Dates: start: 20080709

REACTIONS (3)
  - EYE HAEMORRHAGE [None]
  - EYE PAIN [None]
  - OCULAR VASCULAR DISORDER [None]
